FAERS Safety Report 4410526-2 (Version None)
Quarter: 2004Q3

REPORT INFORMATION
  Report Type: 
  Country: None (occurrence: None)
  Receive Date: 20040728
  Receipt Date: 20040728
  Transmission Date: 20050211
  Serious: No
  Sender: FDA-Public Use
  Company Number: None

PATIENT
  Age: 40 Year
  Sex: Female

DRUGS (5)
  1. SEROQUEL [Suspect]
     Indication: DEPRESSION
     Dosage: 25 MG AM PO AND 25-50 HS
     Route: 048
     Dates: start: 20040520, end: 20040701
  2. SEROQUEL [Suspect]
     Indication: INSOMNIA
     Dosage: 25 MG AM PO AND 25-50 HS
     Route: 048
     Dates: start: 20040520, end: 20040701
  3. SEROQUEL [Suspect]
     Indication: POST-TRAUMATIC STRESS DISORDER
     Dosage: 25 MG AM PO AND 25-50 HS
     Route: 048
     Dates: start: 20040520, end: 20040701
  4. KLONOPIN [Concomitant]
  5. ZOLOFT [Concomitant]

REACTIONS (1)
  - BLOOD GLUCOSE INCREASED [None]
